FAERS Safety Report 9234806 (Version 1)
Quarter: 2013Q2

REPORT INFORMATION
  Report Type: Report from Study
  Country: SE (occurrence: SE)
  Receive Date: 20130416
  Receipt Date: 20130416
  Transmission Date: 20140414
  Serious: Yes (Hospitalization)
  Sender: FDA-Public Use
  Company Number: SE-OTSUKA-EU-2011-10136

PATIENT
  Sex: Female
  Weight: 64 kg

DRUGS (9)
  1. SAMSCA [Suspect]
     Indication: INAPPROPRIATE ANTIDIURETIC HORMONE SECRETION
     Dosage: 15 MG MILLIGRAM(S), DAILY DOSE
     Route: 048
     Dates: start: 20110401, end: 20110402
  2. SAMSCA [Suspect]
     Indication: LUNG DISORDER
  3. METOPROLOL [Concomitant]
     Indication: HYPERTENSION
     Dosage: 50 MG MILLIGRAM(S), DAILY DOSE
     Route: 048
     Dates: start: 2011
  4. PREDNISOLON [Concomitant]
     Indication: CHRONIC OBSTRUCTIVE PULMONARY DISEASE
     Dosage: 10 MG MILLIGRAM(S), DAILY DOSE
     Route: 048
     Dates: start: 20110320
  5. LEVAXIN [Concomitant]
     Dosage: 62.5 MG MILLIGRAM(S), DAILY DOSE
     Route: 048
     Dates: start: 2011
  6. COMBIVENT [Concomitant]
     Indication: CHRONIC OBSTRUCTIVE PULMONARY DISEASE
     Dosage: 2.5 ML MILLILITRE(S), DAILY DOSE
     Route: 050
     Dates: start: 20110320
  7. ACETYLCYSTEIN [Concomitant]
     Indication: CHRONIC OBSTRUCTIVE PULMONARY DISEASE
     Dosage: 200 MG MILLIGRAM(S), DAILY DOSE
     Route: 048
     Dates: start: 20110323
  8. MOLLIPECT [Concomitant]
     Indication: CHRONIC OBSTRUCTIVE PULMONARY DISEASE
     Dosage: 10 ML MILLILITRE(S), DAILY DOSE
     Route: 048
     Dates: start: 20110329
  9. OXASCAND [Concomitant]
     Indication: ANXIETY
     Dosage: 5 MG MILLIGRAM(S), DAILY DOSE
     Route: 048
     Dates: start: 20110320, end: 20110403

REACTIONS (2)
  - Chronic obstructive pulmonary disease [Recovered/Resolved]
  - Pneumonia [Recovered/Resolved]
